FAERS Safety Report 9003784 (Version 1)
Quarter: 2013Q1

REPORT INFORMATION
  Report Type: Spontaneous
  Country: US (occurrence: US)
  Receive Date: 20130108
  Receipt Date: 20130108
  Transmission Date: 20140127
  Serious: No
  Sender: FDA-Public Use
  Company Number: US-GLAXOSMITHKLINE-A0978584A

PATIENT
  Age: 72 Year
  Sex: Male

DRUGS (5)
  1. LOVAZA [Suspect]
     Indication: CORONARY ARTERY DISEASE
     Dosage: 2CAP TWICE PER DAY
     Route: 048
     Dates: start: 2010
  2. TOPROL [Concomitant]
  3. PLAVIX [Concomitant]
  4. POTASSIUM [Concomitant]
  5. MAGNESIUM [Concomitant]

REACTIONS (5)
  - Feeling hot [Recovered/Resolved]
  - Chest discomfort [Unknown]
  - Rash macular [Unknown]
  - Nausea [Unknown]
  - Product quality issue [Unknown]
